FAERS Safety Report 8421384-3 (Version None)
Quarter: 2012Q2

REPORT INFORMATION
  Report Type: 
  Country: None (occurrence: None)
  Receive Date: 20120608
  Receipt Date: 20120605
  Transmission Date: 20120825
  Serious: Yes (Other)
  Sender: FDA-Public Use
  Company Number: PHEH2012US011387

PATIENT
  Sex: Female

DRUGS (4)
  1. HUMULIN R [Concomitant]
  2. FEMARA [Concomitant]
  3. SEROQUEL [Concomitant]
  4. DIOVAN [Suspect]

REACTIONS (1)
  - DIABETES MELLITUS [None]
